FAERS Safety Report 11273305 (Version 2)
Quarter: 2015Q3

REPORT INFORMATION
  Report Type: Spontaneous
  Country: JP (occurrence: JP)
  Receive Date: 20150715
  Receipt Date: 20150715
  Transmission Date: 20151125
  Serious: Yes (Hospitalization)
  Sender: FDA-Public Use
  Company Number: JP-BAYER-2015-370064

PATIENT
  Age: 80 Year
  Sex: Male

DRUGS (2)
  1. PLAVIX [Concomitant]
     Active Substance: CLOPIDOGREL BISULFATE
     Route: 048
  2. BAYASPIRIN [Suspect]
     Active Substance: ASPIRIN
     Route: 048

REACTIONS (4)
  - Haematochezia [Recovering/Resolving]
  - Small intestine ulcer [Recovered/Resolved]
  - Cytomegalovirus enterocolitis [Recovered/Resolved]
  - Gastrointestinal erosion [Recovered/Resolved]

NARRATIVE: CASE EVENT DATE: 201406
